FAERS Safety Report 25239641 (Version 1)
Quarter: 2025Q2

REPORT INFORMATION
  Report Type: Spontaneous
  Country: US (occurrence: US)
  Receive Date: 20250425
  Receipt Date: 20250425
  Transmission Date: 20250717
  Serious: Yes (Hospitalization)
  Sender: MYLAN
  Company Number: US-MYLANLABS-2025M1035037

PATIENT
  Age: 59 Year
  Sex: Female

DRUGS (4)
  1. ALLOPURINOL [Suspect]
     Active Substance: ALLOPURINOL
     Indication: Product used for unknown indication
  2. ALLOPURINOL [Suspect]
     Active Substance: ALLOPURINOL
     Route: 065
  3. ALLOPURINOL [Suspect]
     Active Substance: ALLOPURINOL
     Route: 065
  4. ALLOPURINOL [Suspect]
     Active Substance: ALLOPURINOL

REACTIONS (4)
  - Sepsis [Unknown]
  - Gastric perforation [Unknown]
  - Pancreatitis necrotising [Unknown]
  - Drug reaction with eosinophilia and systemic symptoms [Recovering/Resolving]
